FAERS Safety Report 4931599-4 (Version None)
Quarter: 2006Q1

REPORT INFORMATION
  Report Type: 
  Country: None (occurrence: None)
  Receive Date: 20060303
  Receipt Date: 20060301
  Transmission Date: 20060701
  Serious: Yes (Life-Threatening, Hospitalization)
  Sender: FDA-Public Use
  Company Number: FR-JNJFOC-20060300705

PATIENT
  Sex: Male
  Weight: 75 kg

DRUGS (7)
  1. RISPERDAL CONSTA [Suspect]
     Route: 030
  2. RISPERDAL CONSTA [Suspect]
     Route: 030
  3. TRILEPTAL [Concomitant]
  4. TRILEPTAL [Concomitant]
     Indication: CONVULSION PROPHYLAXIS
  5. LAMICTAL [Concomitant]
  6. LAMICTAL [Concomitant]
     Indication: CONVULSION PROPHYLAXIS
  7. URBANYL [Concomitant]
     Indication: CONVULSION PROPHYLAXIS

REACTIONS (1)
  - STATUS EPILEPTICUS [None]
